FAERS Safety Report 17501465 (Version 1)
Quarter: 2020Q1

REPORT INFORMATION
  Report Type: Spontaneous
  Country: US (occurrence: US)
  Receive Date: 20200305
  Receipt Date: 20200305
  Transmission Date: 20200409
  Serious: No
  Sender: FDA-Public Use
  Company Number: US-BRISTOL-MYERS SQUIBB COMPANY-BMS-2020-018826

PATIENT
  Sex: Female

DRUGS (1)
  1. ELIQUIS [Suspect]
     Active Substance: APIXABAN
     Indication: PULMONARY EMBOLISM
     Dosage: UNK
     Route: 065
     Dates: start: 2019

REACTIONS (7)
  - Asthenia [Unknown]
  - Back pain [Unknown]
  - Pain [Unknown]
  - Dysstasia [Unknown]
  - Pain in extremity [Unknown]
  - Headache [Unknown]
  - Gait disturbance [Unknown]

NARRATIVE: CASE EVENT DATE: 201911
